FAERS Safety Report 5686759-4 (Version None)
Quarter: 2008Q1

REPORT INFORMATION
  Report Type: 
  Country: None (occurrence: None)
  Receive Date: 20080328
  Receipt Date: 20070508
  Transmission Date: 20080703
  Serious: No
  Sender: FDA-Public Use
  Company Number: US-BAYER-US-2007-016488

PATIENT
  Age: 30 Year
  Sex: Female
  Weight: 83 kg

DRUGS (4)
  1. MIRENA [Suspect]
     Indication: CONTRACEPTION
     Route: 015
     Dates: start: 20060401, end: 20070502
  2. ZOLOFT [Concomitant]
     Route: 048
  3. TOPIMAX [Concomitant]
     Route: 048
  4. GLUCOPHAGE [Concomitant]
     Indication: DIABETES MELLITUS

REACTIONS (3)
  - ABDOMINAL PAIN [None]
  - PROCEDURAL PAIN [None]
  - RASH PRURITIC [None]
